FAERS Safety Report 24605772 (Version 2)
Quarter: 2025Q1

REPORT INFORMATION
  Report Type: Spontaneous
  Country: JP (occurrence: JP)
  Receive Date: 20241111
  Receipt Date: 20250311
  Transmission Date: 20250409
  Serious: Yes (Death, Other)
  Sender: BRISTOL-MYERS SQUIBB COMPANY
  Company Number: JP-BRISTOL-MYERS SQUIBB COMPANY-2024-175309

PATIENT
  Age: 61 Year
  Sex: Male

DRUGS (6)
  1. ELIQUIS [Suspect]
     Active Substance: APIXABAN
     Indication: Pulmonary embolism
  2. ALTEPLASE [Suspect]
     Active Substance: ALTEPLASE
     Indication: Brain stem infarction
  3. ALTEPLASE [Suspect]
     Active Substance: ALTEPLASE
     Indication: Vertebrobasilar dolichoectasia
  4. HEPARIN [Suspect]
     Active Substance: HEPARIN SODIUM
     Indication: Brain stem infarction
  5. ASPIRIN [Suspect]
     Active Substance: ASPIRIN
     Indication: Brain stem infarction
  6. CLOPIDOGREL [Suspect]
     Active Substance: CLOPIDOGREL BISULFATE
     Indication: Brain stem infarction

REACTIONS (1)
  - Subarachnoid haemorrhage [Fatal]
